FAERS Safety Report 8492096-5 (Version None)
Quarter: 2012Q3

REPORT INFORMATION
  Report Type: 
  Country: None (occurrence: None)
  Receive Date: 20120706
  Receipt Date: 20120629
  Transmission Date: 20120928
  Serious: Yes (Life-Threatening)
  Sender: FDA-Public Use
  Company Number: DE-TEVA-346525GER

PATIENT
  Sex: Male
  Weight: 125 kg

DRUGS (2)
  1. TRISENOX [Suspect]
     Indication: ACUTE PROMYELOCYTIC LEUKAEMIA
     Dosage: 17.7 MILLIGRAM;
     Route: 042
     Dates: start: 20120522, end: 20120606
  2. VESANOID [Suspect]
     Indication: ACUTE PROMYELOCYTIC LEUKAEMIA
     Dosage: 120 MILLIGRAM;
     Route: 048
     Dates: start: 20120522, end: 20120606

REACTIONS (2)
  - ACUTE PROMYELOCYTIC LEUKAEMIA DIFFERENTIATION SYNDROME [None]
  - HEPATOTOXICITY [None]
